FAERS Safety Report 19025700 (Version 2)
Quarter: 2021Q1

REPORT INFORMATION
  Report Type: Spontaneous
  Country: US (occurrence: US)
  Receive Date: 20210318
  Receipt Date: 20210330
  Transmission Date: 20210420
  Serious: No
  Sender: FDA-Public Use
  Company Number: US-SA-2021SA091403

PATIENT
  Age: 76 Year
  Sex: Female

DRUGS (31)
  1. ATORVASTATIN [Concomitant]
     Active Substance: ATORVASTATIN
  2. HYDROCODONE [Concomitant]
     Active Substance: HYDROCODONE
  3. MIRALAX [Concomitant]
     Active Substance: POLYETHYLENE GLYCOL 3350
     Dosage: 17 GM/SCOOP
  4. METOPROLOL SUCCINATE. [Concomitant]
     Active Substance: METOPROLOL SUCCINATE
  5. PAROXETINE WINTHROP [Concomitant]
  6. SYMBICORT [Concomitant]
     Active Substance: BUDESONIDE\FORMOTEROL FUMARATE DIHYDRATE
  7. ALBUTEROL SULFATE. [Concomitant]
     Active Substance: ALBUTEROL SULFATE
  8. DUPIXENT [Suspect]
     Active Substance: DUPILUMAB
     Dosage: 600 MG, QM
     Route: 058
  9. MORPHINE SULFATE. [Concomitant]
     Active Substance: MORPHINE SULFATE
  10. SYMBICORT [Concomitant]
     Active Substance: BUDESONIDE\FORMOTEROL FUMARATE DIHYDRATE
  11. TRIAMCINOLON [TRIAMCINOLONE ACETONIDE] [Concomitant]
  12. ALBUTEROL [SALBUTAMOL SULFATE] [Concomitant]
     Active Substance: ALBUTEROL SULFATE
  13. HYDROCODONE [Concomitant]
     Active Substance: HYDROCODONE
  14. MIRALAX [Concomitant]
     Active Substance: POLYETHYLENE GLYCOL 3350
  15. ATORVASTATIN [Concomitant]
     Active Substance: ATORVASTATIN
  16. ELIQUIS [Concomitant]
     Active Substance: APIXABAN
  17. LASIX [Concomitant]
     Active Substance: FUROSEMIDE
  18. MONTELUKAST [Concomitant]
     Active Substance: MONTELUKAST SODIUM
  19. MORPHINE SULFATE. [Concomitant]
     Active Substance: MORPHINE SULFATE
  20. PAROXETINE HYDROCHLORIDE. [Concomitant]
     Active Substance: PAROXETINE HYDROCHLORIDE
  21. EPILIM [Concomitant]
     Active Substance: VALPROATE SODIUM
  22. DUPIXENT [Suspect]
     Active Substance: DUPILUMAB
     Indication: DERMATITIS ATOPIC
     Dosage: 300 MG, QOW
     Route: 058
     Dates: start: 20201210
  23. COVID?19 VACCINE NOS. [Suspect]
     Active Substance: COVID-19 VACCINE NOS
     Dosage: UNK
     Dates: start: 20210311, end: 20210311
  24. GABAPENTIN. [Concomitant]
     Active Substance: GABAPENTIN
  25. METOPROLOL. [Concomitant]
     Active Substance: METOPROLOL
  26. FERROUS SULFATE. [Concomitant]
     Active Substance: FERROUS SULFATE
  27. TRIAMCINOLONE [Concomitant]
     Active Substance: TRIAMCINOLONE
  28. GABAPENTIN. [Concomitant]
     Active Substance: GABAPENTIN
  29. LASIX [Concomitant]
     Active Substance: FUROSEMIDE
  30. MONTELUKAST [Concomitant]
     Active Substance: MONTELUKAST SODIUM
  31. NITRO?DUR II [Concomitant]
     Dosage: 0.4 MG/HR

REACTIONS (7)
  - Arthralgia [Not Recovered/Not Resolved]
  - Product use issue [Unknown]
  - Fatigue [Not Recovered/Not Resolved]
  - Dyspnoea [Not Recovered/Not Resolved]
  - Bladder catheterisation [Not Recovered/Not Resolved]
  - Balance disorder [Not Recovered/Not Resolved]
  - Asthma [Not Recovered/Not Resolved]

NARRATIVE: CASE EVENT DATE: 20210311
